FAERS Safety Report 9131272 (Version 2)
Quarter: 2013Q2

REPORT INFORMATION
  Report Type: Spontaneous
  Country: JP (occurrence: JP)
  Receive Date: 20130301
  Receipt Date: 20130528
  Transmission Date: 20140414
  Serious: Yes (Hospitalization)
  Sender: FDA-Public Use
  Company Number: JP-009507513-1303JPN000088

PATIENT
  Age: 71 Year
  Sex: Female
  Weight: 66 kg

DRUGS (9)
  1. JANUVIA TABLETS 50MG [Suspect]
     Indication: TYPE 2 DIABETES MELLITUS
     Dosage: 50 MG, QD
     Route: 048
     Dates: start: 20130205, end: 20130222
  2. JANUVIA TABLETS 50MG [Suspect]
     Indication: DIABETES MELLITUS
     Dosage: 100 MG, QD
     Route: 048
     Dates: start: 20130223, end: 20130224
  3. BASEN [Suspect]
     Indication: DIABETES MELLITUS
     Dosage: 0.9 MG, TID
     Route: 048
     Dates: start: 20130205, end: 20130224
  4. NEXIUM [Concomitant]
     Indication: GASTROOESOPHAGEAL REFLUX DISEASE
     Dosage: 1 DF, QD
     Route: 048
     Dates: start: 20120807
  5. MUCOSTA [Concomitant]
     Indication: GASTRITIS
     Dosage: 3 DF, UNK
     Route: 048
     Dates: start: 20120807
  6. NAUZELIN [Concomitant]
     Indication: GASTROOESOPHAGEAL REFLUX DISEASE
     Dosage: 30 MG, TID
     Route: 048
     Dates: start: 20120807
  7. ACARBOSE [Concomitant]
     Dosage: UNK
     Route: 048
  8. ADALAT CR [Concomitant]
     Indication: HYPERTENSION
     Dosage: 20 MG, QD
     Route: 048
     Dates: start: 20120807
  9. NU-LOTAN TABLETS 25MG [Concomitant]
     Dosage: UNK UNK, QD
     Route: 048
     Dates: start: 20120807

REACTIONS (2)
  - Haematemesis [Recovered/Resolved]
  - Gastrooesophageal reflux disease [Recovered/Resolved]
